FAERS Safety Report 7461029-2 (Version None)
Quarter: 2011Q2

REPORT INFORMATION
  Report Type: 
  Country: None (occurrence: None)
  Receive Date: 20110505
  Receipt Date: 20110429
  Transmission Date: 20111010
  Serious: Yes (Death, Other)
  Sender: FDA-Public Use
  Company Number: SA-GENZYME-FLUD-1001101

PATIENT

DRUGS (7)
  1. CYCLOPHOSPHAMIDE [Suspect]
     Indication: STEM CELL TRANSPLANT
     Dosage: 50 MG/KG, QD X 4 ON DAYS -5, -4, -3, AND -2
     Route: 065
  2. CYCLOPHOSPHAMIDE [Suspect]
     Indication: APLASTIC ANAEMIA
  3. CYCLOSPORINE [Concomitant]
     Indication: PROPHYLAXIS AGAINST GRAFT VERSUS HOST DISEASE
     Dosage: UNK
     Route: 065
  4. FLUDARA [Suspect]
     Indication: APLASTIC ANAEMIA
  5. METHOTREXATE [Concomitant]
     Indication: PROPHYLAXIS AGAINST GRAFT VERSUS HOST DISEASE
     Dosage: 15 MG/M2, QD ON DAY +1
     Route: 065
  6. METHOTREXATE [Concomitant]
     Dosage: 10 MG/M2, QD X 2 ON DAYS +3 AND +6
     Route: 065
  7. FLUDARA [Suspect]
     Indication: STEM CELL TRANSPLANT
     Dosage: 30 MG/M2, QD FOR 3 DAYS ON DAYS -9, -8, AND -7
     Route: 065

REACTIONS (12)
  - VENOOCCLUSIVE LIVER DISEASE [None]
  - CHRONIC GRAFT VERSUS HOST DISEASE [None]
  - ACUTE GRAFT VERSUS HOST DISEASE [None]
  - EPSTEIN-BARR VIRUS ASSOCIATED LYMPHOPROLIFERATIVE DISORDER [None]
  - MUCOSAL INFLAMMATION [None]
  - INFECTION [None]
  - DEATH [None]
  - TRANSPLANT REJECTION [None]
  - APLASIA [None]
  - FEBRILE NEUTROPENIA [None]
  - HAEMORRHAGE [None]
  - CYSTITIS HAEMORRHAGIC [None]
